APPROVED DRUG PRODUCT: DOVONEX
Active Ingredient: CALCIPOTRIENE
Strength: 0.005% **Federal Register determination that product was not discontinued or withdrawn for safety or effectiveness reasons**
Dosage Form/Route: SOLUTION;TOPICAL
Application: N020611 | Product #001
Applicant: LEO PHARMACEUTICAL PRODUCTS LTD
Approved: Mar 3, 1997 | RLD: Yes | RS: No | Type: DISCN